FAERS Safety Report 4890070-9 (Version None)
Quarter: 2006Q1

REPORT INFORMATION
  Report Type: 
  Country: None (occurrence: None)
  Receive Date: 20060124
  Receipt Date: 20051116
  Transmission Date: 20060701
  Serious: Yes (Hospitalization)
  Sender: FDA-Public Use
  Company Number: US-BRISTOL-MYERS SQUIBB COMPANY-13183074

PATIENT
  Age: 48 Year
  Sex: Female

DRUGS (5)
  1. ETOPOSIDE [Suspect]
     Indication: SMALL CELL LUNG CANCER STAGE UNSPECIFIED
     Route: 042
     Dates: start: 20051114, end: 20051115
  2. PARAPLATIN [Suspect]
     Indication: SMALL CELL LUNG CANCER STAGE UNSPECIFIED
     Route: 042
     Dates: start: 20051115, end: 20051115
  3. AUGMENTIN [Concomitant]
  4. ZOFRAN [Concomitant]
  5. COUMADIN [Concomitant]

REACTIONS (1)
  - MUSCLE SPASMS [None]
